FAERS Safety Report 5883029-6 (Version None)
Quarter: 2008Q3

REPORT INFORMATION
  Report Type: 
  Country: None (occurrence: None)
  Receive Date: 20080913
  Receipt Date: 20080826
  Transmission Date: 20090109
  Serious: Yes (Hospitalization)
  Sender: FDA-Public Use
  Company Number: US-ABBOTT-08P-163-0472713-00

PATIENT
  Sex: Female
  Weight: 61.29 kg

DRUGS (4)
  1. HUMIRA [Suspect]
     Indication: CROHN'S DISEASE
     Dosage: INITIALLY
     Route: 058
     Dates: start: 20080813, end: 20080813
  2. HUMIRA [Suspect]
     Indication: RHEUMATOID ARTHRITIS
     Route: 058
     Dates: start: 20060201, end: 20070201
  3. HUMIRA [Suspect]
     Dosage: 40 MG SECOND DOSE
     Route: 058
     Dates: start: 20080815
  4. MESALAMINE [Concomitant]
     Indication: CROHN'S DISEASE

REACTIONS (3)
  - CROHN'S DISEASE [None]
  - LIVER DISORDER [None]
  - PULMONARY OEDEMA [None]
